FAERS Safety Report 8505772-2 (Version None)
Quarter: 2012Q3

REPORT INFORMATION
  Report Type: 
  Country: None (occurrence: None)
  Receive Date: 20120712
  Receipt Date: 20120710
  Transmission Date: 20120928
  Serious: No
  Sender: FDA-Public Use
  Company Number: US-B.I. PHARMACEUTICALS,INC./RIDGEFIELD-2011-BP-12882BP

PATIENT
  Sex: Female

DRUGS (4)
  1. PRADAXA [Suspect]
     Indication: ATRIAL FIBRILLATION
     Dosage: 300 MG
     Route: 048
     Dates: start: 20101101, end: 20110601
  2. COUMADIN [Concomitant]
  3. ATENOLOL [Concomitant]
  4. TOPOROLOL [Concomitant]
     Indication: ATRIAL FIBRILLATION
     Dosage: 12.5 MG

REACTIONS (5)
  - DYSPEPSIA [None]
  - TOOTH INJURY [None]
  - ERUCTATION [None]
  - ABDOMINAL DISCOMFORT [None]
  - FLATULENCE [None]
